FAERS Safety Report 6061973-7 (Version None)
Quarter: 2009Q1

REPORT INFORMATION
  Report Type: 
  Country: None (occurrence: None)
  Receive Date: 20090202
  Receipt Date: 20090127
  Transmission Date: 20090719
  Serious: No
  Sender: FDA-Public Use
  Company Number: US-B.I. PHARMACEUTICALS,INC./RIDGEFIELD-2009-BP-01039BP

PATIENT
  Sex: Female

DRUGS (5)
  1. ZANTAC [Suspect]
     Indication: DYSPEPSIA
     Dosage: 300MG
     Route: 048
     Dates: start: 20090105, end: 20090107
  2. VERAPAMIL [Concomitant]
     Indication: TACHYCARDIA
     Route: 048
     Dates: start: 20070101
  3. VERAPAMIL [Concomitant]
     Indication: HYPERTENSION
  4. CORGARD [Concomitant]
     Indication: HYPERTENSION
     Route: 048
     Dates: start: 19890101
  5. TRANXENE [Concomitant]
     Indication: ANXIETY
     Route: 048
     Dates: start: 19840101

REACTIONS (2)
  - FEELING ABNORMAL [None]
  - HEADACHE [None]
